FAERS Safety Report 20561000 (Version 2)
Quarter: 2022Q1

REPORT INFORMATION
  Report Type: Spontaneous
  Country: IN (occurrence: IN)
  Receive Date: 20220307
  Receipt Date: 20220317
  Transmission Date: 20220423
  Serious: Yes (Other)
  Sender: FDA-Public Use
  Company Number: IN-GUERBET-IN-20220001

PATIENT
  Age: 65 Year
  Sex: Male

DRUGS (6)
  1. LIPIODOL [Suspect]
     Active Substance: ETHIODIZED OIL
     Indication: Transcatheter arterial chemoembolisation
     Dosage: EPIRUBICIN (70 MG) AND LIPIODOL (15 ML)
     Route: 013
  2. EPIRUBICIN [Suspect]
     Active Substance: EPIRUBICIN
     Indication: Transcatheter arterial chemoembolisation
     Dosage: EPIRUBICIN (70 MG) AND LIPIODOL (15 ML)
     Route: 013
  3. GELFOAM [Suspect]
     Active Substance: GELATIN\THROMBIN HUMAN
     Indication: Transcatheter arterial chemoembolisation
     Route: 065
  4. DEXTROSE [Concomitant]
     Active Substance: DEXTROSE
     Indication: Hypoglycaemia
     Route: 065
  5. DEXTROSE [Concomitant]
     Active Substance: DEXTROSE
     Dosage: 20% DEXTROSE
     Route: 065
  6. PREDNISONE [Concomitant]
     Active Substance: PREDNISONE
     Indication: Hypoglycaemia
     Dosage: HIGH-DOSE
     Route: 065

REACTIONS (1)
  - Tumour lysis syndrome [Recovering/Resolving]
